FAERS Safety Report 9261335 (Version 1)
Quarter: 2013Q2

REPORT INFORMATION
  Report Type: Report from Study
  Country: US (occurrence: US)
  Receive Date: 20130429
  Receipt Date: 20130429
  Transmission Date: 20140414
  Serious: Yes (Death, Hospitalization, Other)
  Sender: FDA-Public Use
  Company Number: PHHO2013US005645

PATIENT
  Age: 86 Year
  Sex: Female
  Weight: 58.18 kg

DRUGS (2)
  1. EVEROLIMUS [Suspect]
     Indication: OVARIAN EPITHELIAL CANCER
     Route: 048
     Dates: start: 20120125, end: 20120404
  2. BEVACIZUMAB [Suspect]
     Indication: OVARIAN EPITHELIAL CANCER
     Dosage: 10 MG/KG
     Route: 042
     Dates: start: 20120125, end: 20120404

REACTIONS (8)
  - Death [Fatal]
  - Weight increased [Unknown]
  - Asthenia [Unknown]
  - Dyspnoea [Unknown]
  - Hyponatraemia [Unknown]
  - Urinary tract infection [Unknown]
  - Ascites [Unknown]
  - Hypokalaemia [Unknown]
